FAERS Safety Report 5460964-4 (Version None)
Quarter: 2007Q3

REPORT INFORMATION
  Report Type: 
  Country: None (occurrence: None)
  Receive Date: 20070823
  Receipt Date: 20070613
  Transmission Date: 20080115
  Serious: Yes (Hospitalization)
  Sender: FDA-Public Use
  Company Number: 07P-163-0367961-00

PATIENT
  Age: 60 Year
  Sex: Male
  Weight: 106.3 kg

DRUGS (11)
  1. TRICOR [Suspect]
     Indication: DYSLIPIDAEMIA
     Dosage: 145 MG, 1 IN 1 D, PER ORAL, 160 MG, 1 IN 1 D, PER ORAL
     Route: 048
     Dates: start: 20040801, end: 20051001
  2. TRICOR [Suspect]
     Indication: DYSLIPIDAEMIA
     Dosage: 145 MG, 1 IN 1 D, PER ORAL, 160 MG, 1 IN 1 D, PER ORAL
     Route: 048
     Dates: start: 20051001, end: 20070508
  3. SIMVASTATIN [Suspect]
     Indication: DYSLIPIDAEMIA
     Dosage: 40 MG, 1 IN 1 D, PER ORAL
     Route: 048
     Dates: start: 20060401, end: 20070508
  4. NICOTINIC ACID [Suspect]
     Indication: DYSLIPIDAEMIA
     Dosage: 500 MG, 1 IN 1 D, PER ORAL
     Route: 048
     Dates: start: 20070328, end: 20070508
  5. ETODALOL [Concomitant]
  6. RISPERDAL [Concomitant]
  7. FLUOXETINE HYDROCHLORIDE [Concomitant]
  8. LISINOPRIL [Concomitant]
  9. TIOTROPIUM BROMIDE [Concomitant]
  10. SERETIDE [Concomitant]
  11. COMBIVENT [Concomitant]

REACTIONS (2)
  - LIVER FUNCTION TEST ABNORMAL [None]
  - RHABDOMYOLYSIS [None]
